FAERS Safety Report 4605341-0 (Version None)
Quarter: 2005Q1

REPORT INFORMATION
  Report Type: 
  Country: None (occurrence: None)
  Receive Date: 20050310
  Receipt Date: 20040510
  Transmission Date: 20050727
  Serious: No
  Sender: FDA-Public Use
  Company Number: US-BRISTOL-MYERS SQUIBB COMPANY-12585865

PATIENT
  Age: 62 Year
  Sex: Female
  Weight: 66 kg

DRUGS (2)
  1. MONISTAT-1 VAG OINT [Suspect]
     Indication: VAGINAL PAIN
     Route: 067
  2. MONISTAT-1 VAG OINT [Suspect]
     Indication: VAGINAL BURNING SENSATION
     Route: 067

REACTIONS (1)
  - DRUG INEFFECTIVE [None]
